FAERS Safety Report 4960909-7 (Version None)
Quarter: 2006Q1

REPORT INFORMATION
  Report Type: 
  Country: None (occurrence: None)
  Receive Date: 20060201
  Receipt Date: 20051115
  Transmission Date: 20060701
  Serious: No
  Sender: FDA-Public Use
  Company Number: 2005PV004800

PATIENT
  Age: 76 Year
  Sex: Female
  Weight: 80.7403 kg

DRUGS (9)
  1. BYETTA [Suspect]
     Indication: DIABETES MELLITUS NON-INSULIN-DEPENDENT
     Dosage: 5 MCG; BID; SC
     Route: 058
     Dates: start: 20051101
  2. DILTIAZEM [Concomitant]
  3. LISINOPRIL [Concomitant]
  4. NEXIUM [Concomitant]
  5. REGLAN [Concomitant]
  6. ACTOS [Concomitant]
  7. LIPITOR [Concomitant]
  8. TAMOXIFEN CITRATE [Concomitant]
  9. LEVAQUIN [Concomitant]

REACTIONS (2)
  - NAUSEA [None]
  - WEIGHT DECREASED [None]
